FAERS Safety Report 17148246 (Version 3)
Quarter: 2020Q1

REPORT INFORMATION
  Report Type: Report from Study
  Country: US (occurrence: US)
  Receive Date: 20191212
  Receipt Date: 20200121
  Transmission Date: 20200409
  Serious: Yes (Hospitalization)
  Sender: FDA-Public Use
  Company Number: NVSC2019US014270

PATIENT
  Sex: Female

DRUGS (2)
  1. ENTRESTO [Suspect]
     Active Substance: SACUBITRIL\VALSARTAN
     Indication: PRODUCT USED FOR UNKNOWN INDICATION
     Dosage: 1 DF (24 MG SACUBITRIL /26 MG VALSARTAN), BID
     Route: 048
  2. COREG [Suspect]
     Active Substance: CARVEDILOL
     Indication: PRODUCT USED FOR UNKNOWN INDICATION
     Route: 065

REACTIONS (9)
  - Nasal congestion [Unknown]
  - Chest pain [Unknown]
  - Scratch [Unknown]
  - Pruritus [Unknown]
  - Skin haemorrhage [Unknown]
  - Cholecystitis infective [Unknown]
  - Hypotension [Unknown]
  - Formication [Unknown]
  - Food poisoning [Unknown]
